FAERS Safety Report 10253865 (Version 1)
Quarter: 2014Q2

REPORT INFORMATION
  Report Type: Spontaneous
  Country: US (occurrence: US)
  Receive Date: 20140623
  Receipt Date: 20140623
  Transmission Date: 20141212
  Serious: No
  Sender: FDA-Public Use
  Company Number: US-ZOGENIX, INC.-2011ZX000596

PATIENT
  Age: 39 Year
  Sex: Female
  Weight: 53.57 kg

DRUGS (5)
  1. SUMAVEL DOSEPRO [Suspect]
     Indication: MIGRAINE
  2. TOPIRAMATE [Concomitant]
     Indication: MIGRAINE
  3. PROMETHAZINE [Concomitant]
     Indication: MIGRAINE
  4. PROMETHAZINE [Concomitant]
     Indication: NAUSEA
  5. NARATRIPTAN [Concomitant]
     Indication: MIGRAINE

REACTIONS (2)
  - Injection site haemorrhage [Recovered/Resolved]
  - Injection site scab [Recovered/Resolved]
